FAERS Safety Report 24055479 (Version 2)
Quarter: 2024Q3

REPORT INFORMATION
  Report Type: Spontaneous
  Country: US (occurrence: US)
  Receive Date: 20240705
  Receipt Date: 20240705
  Transmission Date: 20241017
  Serious: Yes (Death)
  Sender: LABORATOIRES SERB
  Company Number: US-SERB S.A.S.-2158871

PATIENT
  Sex: Female

DRUGS (4)
  1. VISTOGARD [Suspect]
     Active Substance: URIDINE TRIACETATE
     Indication: Vomiting
     Route: 048
     Dates: start: 20240424
  2. VISTOGARD [Suspect]
     Active Substance: URIDINE TRIACETATE
     Indication: Nausea
  3. FLUOROURACIL\IRINOTECAN\LEUCOVORIN\OXALIPLATIN [Suspect]
     Active Substance: FLUOROURACIL\IRINOTECAN\LEUCOVORIN\OXALIPLATIN
     Route: 048
  4. FLUOROURACIL [Suspect]
     Active Substance: FLUOROURACIL
     Dates: start: 20240416

REACTIONS (5)
  - Death [Fatal]
  - Product use in unapproved indication [Unknown]
  - Inappropriate schedule of product administration [Unknown]
  - Nausea [Fatal]
  - Vomiting [Fatal]
